FAERS Safety Report 16460604 (Version 4)
Quarter: 2022Q3

REPORT INFORMATION
  Report Type: Spontaneous
  Country: FR (occurrence: FR)
  Receive Date: 20190620
  Receipt Date: 20220708
  Transmission Date: 20221026
  Serious: Yes (Death, Other)
  Sender: FDA-Public Use
  Company Number: None

PATIENT
  Age: 83 Year
  Sex: Female
  Weight: 41 kg

DRUGS (2)
  1. HYDROXYUREA [Suspect]
     Active Substance: HYDROXYUREA
     Indication: Chronic myelomonocytic leukaemia
     Dosage: 1000 MG, QD
     Route: 065
     Dates: start: 20180721, end: 20210727
  2. TRAMETINIB [Suspect]
     Active Substance: TRAMETINIB
     Indication: Chronic myelomonocytic leukaemia
     Dosage: 2 MG, QD
     Route: 065

REACTIONS (2)
  - Toxic encephalopathy [Fatal]
  - Cytopenia [Unknown]

NARRATIVE: CASE EVENT DATE: 20180806
